FAERS Safety Report 4714626-9 (Version None)
Quarter: 2005Q3

REPORT INFORMATION
  Report Type: 
  Country: None (occurrence: None)
  Receive Date: 20050714
  Receipt Date: 20050714
  Transmission Date: 20060218
  Serious: Yes (Hospitalization)
  Sender: FDA-Public Use
  Company Number: None

PATIENT
  Sex: Male

DRUGS (10)
  1. WARFARIN 5 MG [Suspect]
     Indication: ATRIAL FIBRILLATION
     Dosage: 5 MG SUN. TUE. THU ORAL
     Route: 048
  2. WARFARIN 5 MG [Suspect]
     Indication: ATRIAL FIBRILLATION
     Dosage: 2.5 MG ALL OTHER DAY ORAL
     Route: 048
  3. FUROSEMIDE [Concomitant]
  4. CARVEDILOL [Concomitant]
  5. AMLODARONE [Concomitant]
  6. LISINOPRIL [Concomitant]
  7. SPIRONOLACTONE [Concomitant]
  8. NPH INSULIN [Concomitant]
  9. SIMVASTATIN [Concomitant]
  10. CANDSARTAN [Concomitant]

REACTIONS (3)
  - ECCHYMOSIS [None]
  - INTERNATIONAL NORMALISED RATIO INCREASED [None]
  - PAIN IN EXTREMITY [None]
